FAERS Safety Report 16525667 (Version 2)
Quarter: 2019Q3

REPORT INFORMATION
  Report Type: Report from Study
  Country: US (occurrence: US)
  Receive Date: 20190703
  Receipt Date: 20190719
  Transmission Date: 20191004
  Serious: Yes (Other)
  Sender: FDA-Public Use
  Company Number: US-SA-2019SA177459

PATIENT
  Age: 63 Year
  Sex: Female

DRUGS (1)
  1. ALEMTUZUMAB [Suspect]
     Active Substance: ALEMTUZUMAB
     Indication: MULTIPLE SCLEROSIS
     Dosage: 12 MG/1.2ML, QD
     Route: 041
     Dates: start: 20190211, end: 20190213

REACTIONS (2)
  - Multiple sclerosis relapse [Unknown]
  - Autoimmune disorder [Unknown]
